FAERS Safety Report 5644323-7 (Version None)
Quarter: 2008Q1

REPORT INFORMATION
  Report Type: 
  Country: None (occurrence: None)
  Receive Date: 20080229
  Receipt Date: 20080227
  Transmission Date: 20080703
  Serious: Yes (Life-Threatening, Disabling)
  Sender: FDA-Public Use
  Company Number: PHEH2007US15258

PATIENT
  Age: 67 Year
  Sex: Male

DRUGS (2)
  1. TOBI [Suspect]
     Indication: PSEUDOMONAS BRONCHITIS
     Dosage: 300 MG, BID
     Dates: start: 20071111, end: 20071114
  2. ALBUTEROL [Concomitant]

REACTIONS (7)
  - DIZZINESS [None]
  - DYSPNOEA [None]
  - FEELING ABNORMAL [None]
  - HEADACHE [None]
  - NAUSEA [None]
  - TINNITUS [None]
  - VOMITING [None]
